FAERS Safety Report 7827159-8 (Version None)
Quarter: 2011Q4

REPORT INFORMATION
  Report Type: 
  Country: None (occurrence: None)
  Receive Date: 20111018
  Receipt Date: 20110930
  Transmission Date: 20120403
  Serious: Yes (Death, Life-Threatening, Hospitalization, Other)
  Sender: FDA-Public Use
  Company Number: FK201102070

PATIENT
  Age: 62 Year
  Sex: Female

DRUGS (3)
  1. METHYLPREDNISOLONE [Suspect]
     Indication: GOODPASTURE'S SYNDROME
     Dosage: .05 GM, PER DAY, INTRAVENOUS (NOT OTHERWISE SPECIFIED)
     Route: 042
  2. PREDNISOLONE [Suspect]
     Indication: ANTINEUTROPHIL CYTOPLASMIC ANTIBODY
     Dosage: 45 MG, PER DAY,
  3. GANCICLOVIR [Suspect]
     Indication: GOODPASTURE'S SYNDROME

REACTIONS (25)
  - GLOMERULONEPHRITIS RAPIDLY PROGRESSIVE [None]
  - CONTINUOUS HAEMODIAFILTRATION [None]
  - ACUTE ABDOMEN [None]
  - MYOCARDIAC ABSCESS [None]
  - SYSTEMIC MYCOSIS [None]
  - GRANULOCYTOPENIA [None]
  - PULMONARY HAEMORRHAGE [None]
  - DEVICE RELATED INFECTION [None]
  - BRAIN ABSCESS [None]
  - STREPTOCOCCAL BACTERAEMIA [None]
  - PSEUDOMONAL BACTERAEMIA [None]
  - RENAL FAILURE [None]
  - ASPERGILLOSIS [None]
  - IMMUNOSUPPRESSION [None]
  - THROMBOTIC MICROANGIOPATHY [None]
  - DUODENAL ULCER PERFORATION [None]
  - PNEUMOCYSTIS JIROVECI PNEUMONIA [None]
  - DEPRESSION [None]
  - SUICIDAL IDEATION [None]
  - HAEMODIALYSIS [None]
  - LUNG ABSCESS [None]
  - BACTEROIDES BACTERAEMIA [None]
  - DECREASED APPETITE [None]
  - MALNUTRITION [None]
  - REFUSAL OF TREATMENT BY PATIENT [None]
